FAERS Safety Report 6615093-0 (Version None)
Quarter: 2010Q1

REPORT INFORMATION
  Report Type: 
  Country: None (occurrence: None)
  Receive Date: 20100305
  Receipt Date: 20100224
  Transmission Date: 20100710
  Serious: Yes (Hospitalization)
  Sender: FDA-Public Use
  Company Number: US-ASTRAZENECA-2010SE08045

PATIENT
  Sex: Male

DRUGS (3)
  1. OMEPRAZOLE [Suspect]
     Route: 048
  2. NEXIUM [Concomitant]
     Indication: ABDOMINAL DISCOMFORT
     Dosage: 9 MONTHS AGO DURING HOSPITALISATION
     Route: 048
  3. NEXIUM [Concomitant]
     Dosage: DURING SECOND HOSPITALISATION
     Route: 048

REACTIONS (2)
  - DYSPEPSIA [None]
  - WEIGHT DECREASED [None]
